FAERS Safety Report 4462687-7 (Version None)
Quarter: 2004Q3

REPORT INFORMATION
  Report Type: 
  Country: None (occurrence: None)
  Receive Date: 20040927
  Receipt Date: 20040913
  Transmission Date: 20050211
  Serious: Yes (Congenital Anomaly)
  Sender: FDA-Public Use
  Company Number: 2004-120361-NL

PATIENT

DRUGS (10)
  1. REMERON [Suspect]
     Dosage: 45 MG DAILY  ORAL
     Route: 048
  2. REMERON [Suspect]
     Dosage: 60 MG DAILY ORAL
     Route: 048
     Dates: start: 20040223
  3. AMBIEN [Suspect]
     Dosage: 20 MG DAILY ORAL
     Route: 048
  4. EFFEXOR XR [Suspect]
     Dosage: 450 MG DAILY ORAL
     Route: 048
  5. ABILIFY [Suspect]
     Dosage: 15 MG DAILY ORAL
     Route: 048
  6. ABILIFY [Suspect]
     Dosage: 20 MG DAILY ORAL
     Route: 048
     Dates: start: 20031210, end: 20031229
  7. GABITRIL [Suspect]
     Dosage: 12 MG DAILY ORAL
     Route: 048
     Dates: end: 20031229
  8. KLONOPIN [Suspect]
     Dosage: 0.5 MG DAILY ORAL
     Route: 048
     Dates: end: 20031229
  9. ATIVAN [Suspect]
     Dosage: 0.5 MG DAILY ORAL
     Route: 048
     Dates: start: 20031229
  10. ATIVAN [Suspect]
     Dosage: 1 MG DAILY ORAL
     Route: 048

REACTIONS (4)
  - CAESAREAN SECTION [None]
  - CONGENITAL ANOMALY [None]
  - DRUG EXPOSURE DURING PREGNANCY [None]
  - PREMATURE BABY [None]
